FAERS Safety Report 22616140 (Version 2)
Quarter: 2023Q4

REPORT INFORMATION
  Report Type: Report from Study
  Country: US (occurrence: US)
  Receive Date: 20230619
  Receipt Date: 20231107
  Transmission Date: 20240109
  Serious: Yes (Other)
  Sender: FDA-Public Use
  Company Number: US-ABBVIE-5293920

PATIENT
  Sex: Male

DRUGS (1)
  1. RINVOQ [Suspect]
     Active Substance: UPADACITINIB
     Indication: Rheumatoid arthritis
     Dosage: LAST ADMIN DATE : 2023
     Route: 048
     Dates: start: 20230207

REACTIONS (4)
  - Calculus bladder [Recovering/Resolving]
  - Therapeutic product effect decreased [Unknown]
  - Arthralgia [Recovering/Resolving]
  - Bladder disorder [Recovering/Resolving]

NARRATIVE: CASE EVENT DATE: 20230101
